FAERS Safety Report 5117467-6 (Version None)
Quarter: 2006Q3

REPORT INFORMATION
  Report Type: 
  Country: None (occurrence: None)
  Receive Date: 20060929
  Receipt Date: 20060918
  Transmission Date: 20061208
  Serious: Yes (Hospitalization, Disabling, Other)
  Sender: FDA-Public Use
  Company Number: US-JNJFOC-20040704057

PATIENT
  Sex: Male
  Weight: 85.73 kg

DRUGS (7)
  1. DURAGESIC-100 [Suspect]
     Route: 062
  2. DURAGESIC-100 [Suspect]
     Route: 062
  3. DURAGESIC-100 [Suspect]
     Indication: PAIN
     Route: 062
  4. TRAZODONE HCL [Suspect]
     Indication: INSOMNIA
  5. TRAZODONE HCL [Suspect]
     Indication: DEPRESSION
  6. GATIFLOXACIN [Suspect]
     Indication: PNEUMONIA
  7. VALDECOXIB [Suspect]
     Indication: ANTIINFLAMMATORY THERAPY

REACTIONS (41)
  - AFFECTIVE DISORDER [None]
  - AGITATION [None]
  - AMNESIA [None]
  - ANDROGEN DEFICIENCY [None]
  - ANXIETY [None]
  - ASTHENIA [None]
  - ATTENTION DEFICIT/HYPERACTIVITY DISORDER [None]
  - BLOOD PRESSURE INCREASED [None]
  - CLONUS [None]
  - CONVULSION [None]
  - COORDINATION ABNORMAL [None]
  - DEPRESSION [None]
  - DIARRHOEA [None]
  - DISORIENTATION [None]
  - DIZZINESS [None]
  - DYSKINESIA [None]
  - DYSURIA [None]
  - EJACULATION DISORDER [None]
  - EMOTIONAL DISTRESS [None]
  - ENCEPHALOPATHY [None]
  - HYPERREFLEXIA [None]
  - HYPERTONIA [None]
  - HYPOTONIA [None]
  - HYPOXIA [None]
  - LIBIDO DECREASED [None]
  - MENTAL STATUS CHANGES [None]
  - NOCTURIA [None]
  - OVERDOSE [None]
  - PAIN [None]
  - PNEUMONIA ASPIRATION [None]
  - PSYCHOTIC DISORDER [None]
  - RENAL FAILURE [None]
  - SOMNOLENCE [None]
  - SPEECH DISORDER [None]
  - SWELLING [None]
  - TACHYCARDIA [None]
  - TESTICULAR PAIN [None]
  - THINKING ABNORMAL [None]
  - UNRESPONSIVE TO STIMULI [None]
  - URINARY HESITATION [None]
  - VISION BLURRED [None]
